FAERS Safety Report 5568823-3 (Version None)
Quarter: 2007Q4

REPORT INFORMATION
  Report Type: 
  Country: None (occurrence: None)
  Receive Date: 20071220
  Receipt Date: 20070124
  Transmission Date: 20080405
  Serious: No
  Sender: FDA-Public Use
  Company Number: A0637069A

PATIENT
  Sex: Male

DRUGS (1)
  1. AVODART [Suspect]
     Route: 048

REACTIONS (1)
  - URINE OUTPUT INCREASED [None]
